FAERS Safety Report 10637156 (Version 1)
Quarter: 2014Q4

REPORT INFORMATION
  Report Type: Spontaneous
  Country: US (occurrence: US)
  Receive Date: 20141208
  Receipt Date: 20141208
  Transmission Date: 20150529
  Serious: Yes (Other)
  Sender: FDA-Public Use
  Company Number: US-UCBSA-2014020805

PATIENT
  Age: 19 Year
  Sex: Male

DRUGS (6)
  1. OXCARBAZEPINE MYLAN [Concomitant]
     Indication: COMPLEX PARTIAL SEIZURES
     Dosage: 1200 MG
  2. OXCARBAZEPINE MYLAN [Concomitant]
     Dosage: 600 MG IN MORNING AND 900 MG IN AFTERNOON OR EVENING
  3. LORAZEPAM. [Concomitant]
     Active Substance: LORAZEPAM
     Indication: COMPLEX PARTIAL SEIZURES
     Dosage: 2 MG
     Route: 042
  4. LEVETIRACETAM. [Suspect]
     Active Substance: LEVETIRACETAM
     Indication: COMPLEX PARTIAL SEIZURES
     Dosage: 2000 MG
     Route: 042
  5. LEVETIRACETAM. [Suspect]
     Active Substance: LEVETIRACETAM
     Indication: COMPLEX PARTIAL SEIZURES
     Dosage: 500 MG DAILY
  6. LORAZEPAM. [Concomitant]
     Active Substance: LORAZEPAM
     Dosage: 0.5 MG

REACTIONS (1)
  - Blood creatine phosphokinase increased [Recovered/Resolved]
